FAERS Safety Report 10246268 (Version 1)
Quarter: 2014Q2

REPORT INFORMATION
  Report Type: Spontaneous
  Country: IT (occurrence: IT)
  Receive Date: 20140619
  Receipt Date: 20140619
  Transmission Date: 20141212
  Serious: Yes (Hospitalization)
  Sender: FDA-Public Use
  Company Number: IT-B.I. PHARMACEUTICALS,INC./RIDGEFIELD-2014-BI-27338IT

PATIENT
  Age: 69 Year
  Sex: Female

DRUGS (6)
  1. PRADAXA [Suspect]
     Indication: ATRIAL FIBRILLATION
     Route: 048
     Dates: start: 20140202, end: 20140616
  2. PRILACE [Concomitant]
     Route: 065
  3. TAPAZOLE [Concomitant]
     Route: 065
  4. CONGESCOR [Concomitant]
     Route: 065
  5. SPIRIVA [Concomitant]
     Route: 065
  6. NORVASC [Concomitant]
     Route: 065

REACTIONS (1)
  - Sputum abnormal [Recovered/Resolved]
